FAERS Safety Report 14075579 (Version 2)
Quarter: 2017Q4

REPORT INFORMATION
  Report Type: Spontaneous
  Country: US (occurrence: US)
  Receive Date: 20171010
  Receipt Date: 20171024
  Transmission Date: 20180321
  Serious: No
  Sender: FDA-Public Use
  Company Number: US-MYLANLABS-2016M1050252

PATIENT
  Age: 74 Year
  Sex: Female
  Weight: 77.98 kg

DRUGS (2)
  1. METOPROLOL. [Concomitant]
     Active Substance: METOPROLOL
     Indication: PRODUCT USED FOR UNKNOWN INDICATION
     Dosage: 50 MG, QD
  2. CARBIDOPA AND LEVODOPA [Suspect]
     Active Substance: CARBIDOPA\LEVODOPA
     Indication: TREMOR
     Dosage: 50/200 MG, QID
     Route: 048
     Dates: start: 2012, end: 20161116

REACTIONS (9)
  - Swelling face [Recovering/Resolving]
  - Dysphonia [Recovering/Resolving]
  - Hypersensitivity [Not Recovered/Not Resolved]
  - Tremor [Recovering/Resolving]
  - Muscle spasms [Recovering/Resolving]
  - Pruritus [Recovering/Resolving]
  - Rash vesicular [Not Recovered/Not Resolved]
  - Peripheral swelling [Not Recovered/Not Resolved]
  - Throat tightness [Not Recovered/Not Resolved]

NARRATIVE: CASE EVENT DATE: 2015
